FAERS Safety Report 8041328-6 (Version None)
Quarter: 2012Q1

REPORT INFORMATION
  Report Type: 
  Country: None (occurrence: None)
  Receive Date: 20120112
  Receipt Date: 20120109
  Transmission Date: 20120608
  Serious: No
  Sender: FDA-Public Use
  Company Number: US-PFIZER INC-2012006199

PATIENT
  Sex: Male

DRUGS (2)
  1. SORAFENIB [Suspect]
     Dosage: UNK
  2. SUTENT [Suspect]
     Dosage: UNK

REACTIONS (1)
  - PLATELET COUNT DECREASED [None]
